FAERS Safety Report 20264573 (Version 1)
Quarter: 2021Q4

REPORT INFORMATION
  Report Type: Report from Study
  Country: US (occurrence: US)
  Receive Date: 20211231
  Receipt Date: 20211231
  Transmission Date: 20220303
  Serious: Yes (Other)
  Sender: FDA-Public Use
  Company Number: US-IPSEN Group, Research and Development-2021-30119

PATIENT
  Age: 7 Year
  Sex: Female

DRUGS (2)
  1. INCRELEX [Suspect]
     Active Substance: MECASERMIN
     Indication: Hypopituitarism
     Dosage: 21 UNITS
     Route: 058
     Dates: start: 201704
  2. INCRELEX [Suspect]
     Active Substance: MECASERMIN
     Indication: Off label use

REACTIONS (3)
  - COVID-19 [Recovering/Resolving]
  - Off label use [Unknown]
  - Drug ineffective for unapproved indication [Unknown]

NARRATIVE: CASE EVENT DATE: 20170401
